FAERS Safety Report 24295484 (Version 1)
Quarter: 2024Q3

REPORT INFORMATION
  Report Type: Spontaneous
  Country: PL (occurrence: PL)
  Receive Date: 20240908
  Receipt Date: 20240908
  Transmission Date: 20241017
  Serious: No
  Sender: ROCHE
  Company Number: PL-ROCHE-10000074996

PATIENT
  Age: 43 Year
  Sex: Female

DRUGS (1)
  1. OCRELIZUMAB [Suspect]
     Active Substance: OCRELIZUMAB
     Indication: Multiple sclerosis
     Route: 065
     Dates: start: 20171006

REACTIONS (9)
  - Throat irritation [Recovered/Resolved]
  - Headache [Recovered/Resolved]
  - Urinary tract infection [Unknown]
  - Back pain [Unknown]
  - Arthralgia [Unknown]
  - Pain in extremity [Unknown]
  - Cough [Unknown]
  - Multiple sclerosis [Unknown]
  - COVID-19 [Unknown]
